FAERS Safety Report 10190005 (Version 1)
Quarter: 2014Q2

REPORT INFORMATION
  Report Type: Spontaneous
  Country: US (occurrence: US)
  Receive Date: 20140522
  Receipt Date: 20140522
  Transmission Date: 20141212
  Serious: Yes (Other)
  Sender: FDA-Public Use
  Company Number: US-AMGEN-USASP2014036034

PATIENT
  Age: 88 Year
  Sex: Female

DRUGS (8)
  1. PROLIA [Suspect]
     Indication: OSTEOPOROSIS POSTMENOPAUSAL
     Dosage: UNK
     Route: 065
     Dates: start: 2009
  2. METHOTREXATE [Concomitant]
     Indication: RHEUMATOID ARTHRITIS
     Dosage: UNK
     Dates: start: 1983
  3. LEVOTHYROXINE [Concomitant]
     Dosage: 0.5 MUG, UNK
  4. BABY ASPIRIN [Concomitant]
  5. CALCIUM [Concomitant]
  6. FUROSEMIDE [Concomitant]
     Dosage: 20 MG, UNK
  7. SIMVASTATIN [Concomitant]
     Dosage: 40 MG, UNK
  8. LOTREL [Concomitant]

REACTIONS (8)
  - Immunodeficiency [Unknown]
  - Cataract [Unknown]
  - Arthropathy [Not Recovered/Not Resolved]
  - Feeling hot [Unknown]
  - Feeling cold [Unknown]
  - Laboratory test abnormal [Unknown]
  - Upper extremity mass [Unknown]
  - Mobility decreased [Unknown]
